FAERS Safety Report 6671773-2 (Version None)
Quarter: 2010Q2

REPORT INFORMATION
  Report Type: 
  Country: None (occurrence: None)
  Receive Date: 20100407
  Receipt Date: 20100326
  Transmission Date: 20101027
  Serious: Yes (Other)
  Sender: FDA-Public Use
  Company Number: GB-PFIZER INC-2010039409

PATIENT
  Age: 45 Year
  Sex: Male

DRUGS (9)
  1. XALATAN [Suspect]
     Dosage: UNK
     Route: 047
  2. RAMIPRIL [Concomitant]
  3. NITROGLYCERIN [Concomitant]
  4. BISOPROLOL [Concomitant]
  5. AMLODIPINE [Concomitant]
  6. VENTOLIN [Concomitant]
  7. NICORANDIL [Concomitant]
  8. ACETYLSALICYLIC ACID [Concomitant]
  9. SIMVASTATIN [Concomitant]

REACTIONS (2)
  - ASTHENOPIA [None]
  - DRY EYE [None]
